FAERS Safety Report 7569180-3 (Version None)
Quarter: 2011Q2

REPORT INFORMATION
  Report Type: 
  Country: None (occurrence: None)
  Receive Date: 20110623
  Receipt Date: 20110610
  Transmission Date: 20111010
  Serious: Yes (Other)
  Sender: FDA-Public Use
  Company Number: PHHY2011US52377

PATIENT
  Sex: Female

DRUGS (1)
  1. RECLAST [Suspect]
     Dosage: 5 MG, UNK
     Route: 042

REACTIONS (3)
  - GASTROINTESTINAL BACTERIAL INFECTION [None]
  - SPINAL FRACTURE [None]
  - ABDOMINAL DISCOMFORT [None]
